FAERS Safety Report 6313720-9 (Version None)
Quarter: 2009Q3

REPORT INFORMATION
  Report Type: 
  Country: None (occurrence: None)
  Receive Date: 20090818
  Receipt Date: 20081204
  Transmission Date: 20100115
  Serious: No
  Sender: FDA-Public Use
  Company Number: US-BRISTOL-MYERS SQUIBB COMPANY-14433452

PATIENT
  Sex: Male

DRUGS (2)
  1. ZERIT [Suspect]
  2. KALETRA [Suspect]

REACTIONS (3)
  - BLOOD TRIGLYCERIDES INCREASED [None]
  - LIPOATROPHY [None]
  - NEUROPATHY PERIPHERAL [None]
